FAERS Safety Report 9257913 (Version 1)
Quarter: 2013Q2

REPORT INFORMATION
  Report Type: Spontaneous
  Country: US (occurrence: US)
  Receive Date: 20130426
  Receipt Date: 20130426
  Transmission Date: 20140414
  Serious: No
  Sender: FDA-Public Use
  Company Number: US-GLAXOSMITHKLINE-A0984931A

PATIENT
  Sex: Male

DRUGS (12)
  1. ZOFRAN [Suspect]
     Indication: NAUSEA
     Dosage: 8MG AS REQUIRED
     Route: 048
     Dates: start: 201206
  2. CYMBALTA [Concomitant]
  3. ACYCLOVIR [Concomitant]
  4. FLOVENT [Concomitant]
  5. CIPRO [Concomitant]
  6. URSODIOL [Concomitant]
  7. AMBIEN [Concomitant]
  8. FENTANYL [Concomitant]
  9. NEURONTIN [Concomitant]
  10. HYDROMORPHONE [Concomitant]
  11. CLOTRIMAZOLE [Concomitant]
  12. LOVENOX [Concomitant]

REACTIONS (2)
  - Drug ineffective [Not Recovered/Not Resolved]
  - Product quality issue [Unknown]
